FAERS Safety Report 8820626 (Version 4)
Quarter: 2013Q3

REPORT INFORMATION
  Report Type: Spontaneous
  Country: ES (occurrence: ES)
  Receive Date: 20121002
  Receipt Date: 20130905
  Transmission Date: 20140515
  Serious: Yes (Other)
  Sender: FDA-Public Use
  Company Number: ES-JNJFOC-20120912974

PATIENT
  Age: 58 Year
  Sex: Female

DRUGS (4)
  1. PALEXIA RETARD 50 MG COMPRIMIDOS DE LIBERACION PROLONGADA [Suspect]
     Indication: NEUROPATHY PERIPHERAL
     Route: 048
     Dates: start: 20120906, end: 201209
  2. PALEXIA RETARD 50 MG COMPRIMIDOS DE LIBERACION PROLONGADA [Suspect]
     Indication: NEUROPATHY PERIPHERAL
     Route: 048
     Dates: start: 201209, end: 201209
  3. TRANKIMAZIN [Concomitant]
     Route: 065
  4. ESCITALOPRAM [Concomitant]
     Route: 065

REACTIONS (5)
  - Asthma [Recovered/Resolved]
  - Abdominal pain [Recovered/Resolved]
  - Diarrhoea [Recovered/Resolved]
  - Abdominal pain upper [Recovered/Resolved]
  - Fatigue [Recovered/Resolved]
